FAERS Safety Report 5747915-X (Version None)
Quarter: 2008Q2

REPORT INFORMATION
  Report Type: 
  Country: None (occurrence: None)
  Receive Date: 20080523
  Receipt Date: 20080513
  Transmission Date: 20081010
  Serious: Yes (Hospitalization)
  Sender: FDA-Public Use
  Company Number: CH-WATSON-2008-03008

PATIENT
  Sex: Female

DRUGS (4)
  1. TRELSTAR DEPOT (WITH CLIP'N'JECT) (WATSON LABORATORIES) [Suspect]
     Indication: BREAST CANCER
     Dosage: 3.75 MG, NOT REPORTED
     Route: 030
     Dates: start: 20050907
  2. TAMOXIFEN CITRATE [Suspect]
     Indication: BREAST CANCER
     Dosage: 20 MG, NOT REPORTED
     Route: 048
     Dates: start: 20060119
  3. ANTIDEPRESSANTS [Concomitant]
     Indication: DEPRESSION
     Dosage: UNK
     Dates: start: 20080101
  4. CHEMOTHERAPY [Concomitant]
     Indication: BREAST CANCER
     Dosage: UNK
     Dates: start: 20050907

REACTIONS (1)
  - DEPRESSION [None]
